FAERS Safety Report 7414740-3 (Version None)
Quarter: 2011Q1

REPORT INFORMATION
  Report Type: 
  Country: None (occurrence: None)
  Receive Date: 20110301
  Receipt Date: 20100917
  Transmission Date: 20110831
  Serious: Yes (Hospitalization)
  Sender: FDA-Public Use
  Company Number: US-JNJFOC-20080100030

PATIENT
  Age: 41 Year
  Sex: Male

DRUGS (6)
  1. ANTIBIOTICS (ANTIBIOTICS) [Concomitant]
  2. LISINOPRIL [Concomitant]
  3. IBUPROFEN [Suspect]
     Indication: BACK PAIN
     Dosage: 800 MG 3-4 DAILY
     Dates: start: 19890310, end: 19900501
  4. ZANTAC [Concomitant]
  5. EDECRIN (ETACRYNIC ACID) [Concomitant]
  6. ERYTHROMYCIN [Concomitant]

REACTIONS (3)
  - RASH [None]
  - RENAL FAILURE [None]
  - PARAESTHESIA [None]
